FAERS Safety Report 24333399 (Version 2)
Quarter: 2024Q3

REPORT INFORMATION
  Report Type: Spontaneous
  Country: US (occurrence: US)
  Receive Date: 20240918
  Receipt Date: 20240926
  Transmission Date: 20241016
  Serious: No
  Sender: PFIZER
  Company Number: US-PFIZER INC-202400257415

PATIENT
  Age: 84 Year
  Sex: Female

DRUGS (2)
  1. PREMARIN [Suspect]
     Active Substance: ESTROGENS, CONJUGATED
     Indication: Cystitis
     Dosage: UNK
     Dates: start: 2024
  2. PREMARIN [Suspect]
     Active Substance: ESTROGENS, CONJUGATED
     Indication: Bladder disorder

REACTIONS (10)
  - Fatigue [Recovering/Resolving]
  - Abdominal pain upper [Unknown]
  - Product administered at inappropriate site [Unknown]
  - Vulvovaginal burning sensation [Unknown]
  - Vulvovaginal pruritus [Unknown]
  - Vulvovaginal swelling [Unknown]
  - Vulval disorder [Recovered/Resolved]
  - Vulvovaginal mycotic infection [Unknown]
  - Off label use [Unknown]
  - Drug effective for unapproved indication [Unknown]

NARRATIVE: CASE EVENT DATE: 20240101
